FAERS Safety Report 24438025 (Version 2)
Quarter: 2024Q4

REPORT INFORMATION
  Report Type: Report from Study
  Country: CO (occurrence: CO)
  Receive Date: 20241015
  Receipt Date: 20241024
  Transmission Date: 20250115
  Serious: Yes (Hospitalization, Other)
  Sender: ABBVIE
  Company Number: CO-ABBVIE-5961896

PATIENT
  Sex: Female
  Weight: 58 kg

DRUGS (1)
  1. SKYRIZI [Suspect]
     Active Substance: RISANKIZUMAB-RZAA
     Indication: Psoriasis
     Dosage: FORM STRENGTH: 150MG
     Route: 058
     Dates: start: 20210723, end: 20240714

REACTIONS (8)
  - Phlebitis [Unknown]
  - Cellulitis [Recovering/Resolving]
  - Musculoskeletal disorder [Unknown]
  - Abscess [Unknown]
  - Chills [Unknown]
  - Pain in extremity [Unknown]
  - Gait inability [Unknown]
  - Limb mass [Unknown]
